FAERS Safety Report 5155621-8 (Version None)
Quarter: 2006Q4

REPORT INFORMATION
  Report Type: 
  Country: None (occurrence: None)
  Receive Date: 20061114
  Receipt Date: 20061031
  Transmission Date: 20070319
  Serious: Yes (Other)
  Sender: FDA-Public Use
  Company Number: 2006133977

PATIENT
  Age: 58 Year
  Sex: Male
  Weight: 102.0593 kg

DRUGS (7)
  1. LYRICA [Suspect]
     Indication: NEUROPATHY PERIPHERAL
     Dosage: 150 MG (75 MG, 2 IN 1 D)
     Dates: start: 20060101, end: 20061001
  2. NOVOLIN 70/30 [Concomitant]
  3. CLONIDINE [Concomitant]
  4. LISINOPRIL [Concomitant]
  5. FUROSEMIDE [Concomitant]
  6. ATENOLOL [Concomitant]
  7. ALLOPURINOL [Concomitant]

REACTIONS (17)
  - ABDOMINAL PAIN [None]
  - BACK PAIN [None]
  - CHROMATURIA [None]
  - CONDITION AGGRAVATED [None]
  - CONTUSION [None]
  - DYSPNOEA [None]
  - EPISTAXIS [None]
  - EYE HAEMORRHAGE [None]
  - GASTRIC DISORDER [None]
  - INCREASED UPPER AIRWAY SECRETION [None]
  - NAUSEA [None]
  - PHARYNGEAL HAEMORRHAGE [None]
  - RETCHING [None]
  - URINE OUTPUT DECREASED [None]
  - VISION BLURRED [None]
  - VISUAL DISTURBANCE [None]
  - VITREOUS FLOATERS [None]
